FAERS Safety Report 5519433-5 (Version None)
Quarter: 2007Q4

REPORT INFORMATION
  Report Type: 
  Country: None (occurrence: None)
  Receive Date: 20071114
  Receipt Date: 20071030
  Transmission Date: 20080405
  Serious: Yes (Other)
  Sender: FDA-Public Use
  Company Number: DSM-2007-00864

PATIENT
  Age: 47 Year
  Sex: Female

DRUGS (5)
  1. OLMESARTAN MEDOXOMIL [Suspect]
     Indication: ESSENTIAL HYPERTENSION
     Dosage: 20 MG (20 MG,1 IN 1 D), ORAL : 40 MG (40 MG,1 IN 1 D), ORAL
     Route: 048
     Dates: end: 20070509
  2. OLMESARTAN MEDOXOMIL [Suspect]
     Indication: ESSENTIAL HYPERTENSION
     Dosage: 20 MG (20 MG,1 IN 1 D), ORAL : 40 MG (40 MG,1 IN 1 D), ORAL
     Route: 048
     Dates: start: 20070510, end: 20070625
  3. SIMVASTATIN [Concomitant]
  4. INSULIN [Concomitant]
  5. ASPIRIN [Concomitant]

REACTIONS (3)
  - BLOOD CREATININE INCREASED [None]
  - BLOOD UREA INCREASED [None]
  - GENERALISED OEDEMA [None]
